FAERS Safety Report 9753225 (Version 2)
Quarter: 2015Q3

REPORT INFORMATION
  Report Type: Spontaneous
  Country: US (occurrence: US)
  Receive Date: 20131213
  Receipt Date: 20150805
  Transmission Date: 20151125
  Serious: No
  Sender: FDA-Public Use
  Company Number: US-GILEAD-2010-0027622

PATIENT
  Age: 67 Year
  Sex: Female
  Weight: 57.61 kg

DRUGS (28)
  1. LANOXIN [Concomitant]
     Active Substance: DIGOXIN
  2. LEXAPRO [Concomitant]
     Active Substance: ESCITALOPRAM OXALATE
  3. COZAAR [Concomitant]
     Active Substance: LOSARTAN POTASSIUM
  4. LANTUS [Concomitant]
     Active Substance: INSULIN GLARGINE
  5. CELEXA [Concomitant]
     Active Substance: CITALOPRAM HYDROBROMIDE
  6. KEPPRA [Concomitant]
     Active Substance: LEVETIRACETAM
  7. RESTORIL [Concomitant]
     Active Substance: TEMAZEPAM
  8. ALDACTONE [Concomitant]
     Active Substance: SPIRONOLACTONE
  9. POTASSIUM CHLORIDE. [Concomitant]
     Active Substance: POTASSIUM CHLORIDE
  10. PRILOSEC [Concomitant]
     Active Substance: OMEPRAZOLE MAGNESIUM
  11. AMOXIL [Concomitant]
     Active Substance: AMOXICILLIN
  12. XANAX [Concomitant]
     Active Substance: ALPRAZOLAM
  13. ZYRTEC [Concomitant]
     Active Substance: CETIRIZINE HYDROCHLORIDE
  14. MILK OF MAGNESIA [Concomitant]
     Active Substance: MAGNESIUM HYDROXIDE
  15. DULCOLAX [Concomitant]
     Active Substance: BISACODYL OR DOCUSATE SODIUM
  16. NASACORT [Concomitant]
     Active Substance: TRIAMCINOLONE ACETONIDE
  17. IMDUR [Concomitant]
     Active Substance: ISOSORBIDE MONONITRATE
  18. ALBUTEROL. [Concomitant]
     Active Substance: ALBUTEROL
  19. LASIX [Concomitant]
     Active Substance: FUROSEMIDE
  20. WELLBUTRIN [Concomitant]
     Active Substance: BUPROPION HYDROCHLORIDE
  21. NEURONTIN [Concomitant]
     Active Substance: GABAPENTIN
  22. IPRATROPIUM BROMIDE/SALBUTAMOL SULFATE [Concomitant]
  23. SODIUM CHLORIDE. [Concomitant]
     Active Substance: SODIUM CHLORIDE
  24. MAGNESIUM [Concomitant]
     Active Substance: MAGNESIUM
  25. HYDROCHLOROTHIAZIDE. [Concomitant]
     Active Substance: HYDROCHLOROTHIAZIDE
  26. LETAIRIS [Suspect]
     Active Substance: AMBRISENTAN
     Indication: PULMONARY ARTERIAL HYPERTENSION
     Route: 048
     Dates: start: 20091109
  27. REVATIO [Concomitant]
     Active Substance: SILDENAFIL CITRATE
  28. GLUCOPHAGE [Concomitant]
     Active Substance: METFORMIN HYDROCHLORIDE

REACTIONS (1)
  - Sinus congestion [Unknown]
